FAERS Safety Report 25724654 (Version 2)
Quarter: 2025Q4

REPORT INFORMATION
  Report Type: Report from Study
  Country: US (occurrence: US)
  Receive Date: 20250826
  Receipt Date: 20251003
  Transmission Date: 20260118
  Serious: Yes (Hospitalization, Other)
  Sender: ABBVIE
  Company Number: US-ABBVIE-6430002

PATIENT
  Age: 66 Year
  Sex: Male

DRUGS (1)
  1. VENCLEXTA [Suspect]
     Active Substance: VENETOCLAX
     Indication: Myelodysplastic syndrome
     Route: 048
     Dates: start: 20250813

REACTIONS (7)
  - Hospitalisation [Unknown]
  - Platelet count decreased [Unknown]
  - Haemoglobin decreased [Recovering/Resolving]
  - White blood cell count abnormal [Unknown]
  - Red blood cell count abnormal [Unknown]
  - Pneumonia [Recovered/Resolved]
  - Lung disorder [Unknown]

NARRATIVE: CASE EVENT DATE: 20250101
